FAERS Safety Report 10417333 (Version 1)
Quarter: 2014Q3

REPORT INFORMATION
  Report Type: Other
  Country: FR (occurrence: FR)
  Receive Date: 20140828
  Receipt Date: 20140828
  Transmission Date: 20150326
  Serious: Yes (Life-Threatening, Hospitalization)
  Sender: FDA-Public Use
  Company Number: FR-MYLAN-2014M1002468

PATIENT

DRUGS (3)
  1. SALBUTAMOL [Suspect]
     Active Substance: ALBUTEROL
     Dosage: UNK
     Route: 042
     Dates: start: 20080303, end: 20080306
  2. ATARAX [Concomitant]
     Active Substance: HYDROXYZINE\HYDROXYZINE HYDROCHLORIDE
     Dosage: UNK
     Route: 048
     Dates: start: 20080303, end: 20080306
  3. CELESTENE                          /00008501/ [Concomitant]
     Dosage: UNK
     Route: 030
     Dates: start: 20080303, end: 20080305

REACTIONS (3)
  - Acute pulmonary oedema [Recovered/Resolved]
  - Respiratory failure [Recovered/Resolved]
  - Hyperthermia [Recovered/Resolved]

NARRATIVE: CASE EVENT DATE: 20080306
